FAERS Safety Report 24589153 (Version 1)
Quarter: 2024Q4

REPORT INFORMATION
  Report Type: Spontaneous
  Country: CN (occurrence: CN)
  Receive Date: 20241107
  Receipt Date: 20241107
  Transmission Date: 20250114
  Serious: Yes (Other)
  Sender: NOVARTIS
  Company Number: CN-002147023-NVSC2024CN212576

PATIENT
  Age: 8 Year
  Sex: Female
  Weight: 25 kg

DRUGS (2)
  1. DEFEROXAMINE MESYLATE [Suspect]
     Active Substance: DEFEROXAMINE MESYLATE
     Indication: Blood iron increased
     Dosage: UNK
     Route: 065
     Dates: start: 202110
  2. DEFEROXAMINE MESYLATE [Suspect]
     Active Substance: DEFEROXAMINE MESYLATE
     Dosage: 1.2 G, QD
     Route: 041
     Dates: start: 20241010, end: 20241015

REACTIONS (3)
  - Hepatic function abnormal [Not Recovered/Not Resolved]
  - Blood uric acid increased [Unknown]
  - Blood creatinine increased [Unknown]

NARRATIVE: CASE EVENT DATE: 20221001
